FAERS Safety Report 9684596 (Version 1)
Quarter: 2013Q4

REPORT INFORMATION
  Report Type: Spontaneous
  Country: US (occurrence: None)
  Receive Date: 20131108
  Receipt Date: 20131108
  Transmission Date: 20140711
  Serious: Yes (Death)
  Sender: FDA-Public Use
  Company Number: US-LHC-2013058

PATIENT
  Age: 41 Year
  Sex: 0

DRUGS (1)
  1. OXYGEN [Suspect]
     Indication: STATUS EPILEPTICUS

REACTIONS (7)
  - Haemodynamic instability [None]
  - Pneumocephalus [None]
  - Brain oedema [None]
  - Brain herniation [None]
  - General physical health deterioration [None]
  - Brain death [None]
  - Condition aggravated [None]
